FAERS Safety Report 5629397-1 (Version None)
Quarter: 2008Q1

REPORT INFORMATION
  Report Type: 
  Country: None (occurrence: None)
  Receive Date: 20080215
  Receipt Date: 20080215
  Transmission Date: 20080703
  Serious: Yes (Hospitalization)
  Sender: FDA-Public Use
  Company Number: None

PATIENT
  Age: 67 Year
  Sex: Male
  Weight: 101 kg

DRUGS (1)
  1. SORAFENIB [Suspect]
     Indication: PROSTATE CANCER
     Dosage: 400MG  BID  PO
     Route: 048
     Dates: start: 20070425, end: 20080124

REACTIONS (3)
  - CONSTIPATION [None]
  - DIABETIC COMPLICATION [None]
  - DISEASE PROGRESSION [None]
